FAERS Safety Report 18463082 (Version 1)
Quarter: 2020Q4

REPORT INFORMATION
  Report Type: Spontaneous
  Country: US (occurrence: US)
  Receive Date: 20201104
  Receipt Date: 20201104
  Transmission Date: 20210114
  Serious: Yes (Other)
  Sender: FDA-Public Use
  Company Number: US-BAYER-2020-231839

PATIENT
  Sex: Male

DRUGS (1)
  1. AFRIN ORIGINAL [Suspect]
     Active Substance: OXYMETAZOLINE HYDROCHLORIDE
     Indication: PRODUCT USED FOR UNKNOWN INDICATION
     Dosage: UNK

REACTIONS (1)
  - Dependence [Not Recovered/Not Resolved]
